FAERS Safety Report 5921283-2 (Version None)
Quarter: 2008Q4

REPORT INFORMATION
  Report Type: 
  Country: None (occurrence: None)
  Receive Date: 20081014
  Receipt Date: 20080923
  Transmission Date: 20090506
  Serious: Yes (Hospitalization)
  Sender: FDA-Public Use
  Company Number: 8035061

PATIENT
  Age: 15 Year
  Sex: Male

DRUGS (2)
  1. EQUASYM [Suspect]
     Indication: ATTENTION DEFICIT/HYPERACTIVITY DISORDER
  2. EQUASYM [Suspect]
     Indication: ATTENTION DEFICIT/HYPERACTIVITY DISORDER
     Dosage: PO
     Route: 048
     Dates: start: 20080922, end: 20080922

REACTIONS (3)
  - ANXIETY [None]
  - INCORRECT DOSE ADMINISTERED [None]
  - PARENT-CHILD PROBLEM [None]
